FAERS Safety Report 8850959 (Version 1)
Quarter: 2012Q4

REPORT INFORMATION
  Report Type: 
  Country: BR (occurrence: BR)
  Receive Date: 20121019
  Receipt Date: 20121019
  Transmission Date: 20130627
  Serious: Yes (Death)
  Sender: FDA-Public Use
  Company Number: PHHY2012BR093055

PATIENT
  Sex: Female

DRUGS (1)
  1. DIOVAN HCT [Suspect]
     Dosage: 1 DF, One film coated tablet (valsartan 160mg and hydrochlorothiazide 12.5mg) daily
     Route: 048

REACTIONS (1)
  - Pulmonary embolism [Fatal]
